FAERS Safety Report 6543031-8 (Version None)
Quarter: 2010Q1

REPORT INFORMATION
  Report Type: 
  Country: None (occurrence: None)
  Receive Date: 20100120
  Receipt Date: 20091210
  Transmission Date: 20100710
  Serious: No
  Sender: FDA-Public Use
  Company Number: US-BAYER-200942615NA

PATIENT
  Age: 57 Year
  Sex: Female
  Weight: 81 kg

DRUGS (3)
  1. ULTRAVIST 150 [Suspect]
     Indication: COMPUTERISED TOMOGRAM
     Dosage: TOTAL DAILY DOSE: 120 ML  UNIT DOSE: 200 ML
     Route: 042
     Dates: start: 20091210, end: 20091210
  2. COUMADIN [Concomitant]
  3. TOPROL-XL [Concomitant]

REACTIONS (2)
  - NAUSEA [None]
  - VOMITING [None]
